FAERS Safety Report 5761034-8 (Version None)
Quarter: 2008Q2

REPORT INFORMATION
  Report Type: 
  Country: None (occurrence: None)
  Receive Date: 20080606
  Receipt Date: 20070531
  Transmission Date: 20081010
  Serious: No
  Sender: FDA-Public Use
  Company Number: US-ASTRAZENECA-2007UW13318

PATIENT
  Age: 59 Year
  Sex: Male

DRUGS (3)
  1. PRILOSEC [Suspect]
     Indication: EROSIVE OESOPHAGITIS
     Route: 048
  2. DILTIAZEM [Concomitant]
  3. NUTRITIONAL SUPPLEMENTS [Concomitant]

REACTIONS (1)
  - MYOCLONUS [None]
